FAERS Safety Report 14535490 (Version 2)
Quarter: 2018Q1

REPORT INFORMATION
  Report Type: Spontaneous
  Country: DE (occurrence: DE)
  Receive Date: 20180215
  Receipt Date: 20180313
  Transmission Date: 20180509
  Serious: Yes (Other)
  Sender: FDA-Public Use
  Company Number: DE-TEVA-2018-DE-855537

PATIENT
  Sex: Male

DRUGS (6)
  1. SPIRONOLACTON-RATIOPHARM 50 MG [Concomitant]
     Dosage: 50 MG PER DAY
  2. ATORVASTATIN-RATIOPHARM 40 MG [Suspect]
     Active Substance: ATORVASTATIN CALCIUM
     Indication: HYPERCHOLESTEROLAEMIA
     Route: 048
  3. SILDENAFIL 1A PHARMA 50 MG [Concomitant]
  4. BISOHEXAL 2,5 MG [Concomitant]
     Dosage: 2,5 MG PER DAY
  5. VOLTAREN RESINAT [Concomitant]
     Active Substance: DICLOFENAC
     Indication: PAIN
  6. ASS 100 MG STADA [Concomitant]

REACTIONS (10)
  - Swelling face [Recovered/Resolved]
  - Dyspnoea [Recovered/Resolved]
  - Pruritus [Recovered/Resolved]
  - Dermatitis allergic [Recovered/Resolved]
  - Flushing [Recovered/Resolved]
  - Visual impairment [Recovered/Resolved]
  - Ocular hyperaemia [Recovered/Resolved]
  - Discomfort [Recovered/Resolved]
  - Eye pruritus [Recovered/Resolved]
  - Eye swelling [Recovered/Resolved]
